FAERS Safety Report 8042800 (Version 2)
Quarter: 2012Q4

REPORT INFORMATION
  Report Type: 
  Country: US (occurrence: US)
  Receive Date: 20110718
  Receipt Date: 20121121
  Transmission Date: 20130627
  Serious: Yes (Death, Other)
  Sender: FDA-Public Use
  Company Number: US-ASTRAZENECA-2011SE40759

PATIENT
  Age: 85 Year
  Sex: Female

DRUGS (15)
  1. TOPROL XL [Suspect]
     Route: 048
  2. CRESTOR [Suspect]
     Route: 048
  3. TRACLEER [Concomitant]
     Route: 048
  4. METFORMIN HCL [Concomitant]
     Dosage: EVERY DAY WITH MORNING AND EVENING MEALS
     Route: 048
  5. ALENDRONATE SODIUM [Concomitant]
     Dosage: EVERY WEEK IN THE MORNING
     Route: 048
  6. HYDROCHLOROTHIAZIDE [Concomitant]
     Route: 048
  7. NIASPAN [Concomitant]
     Route: 048
  8. LASIX [Concomitant]
     Route: 048
  9. KLOR-CON M20 [Concomitant]
     Route: 048
  10. OXYGEN [Concomitant]
     Dosage: 2 L DURING DAY 1 L AT BEDTIME
  11. OMEGA-3 [Concomitant]
     Route: 048
  12. REVATIO [Concomitant]
     Route: 048
  13. WARFARIN SODIUM [Concomitant]
     Dosage: AS REQUIRED
  14. CALCIUM+ D [Concomitant]
     Dosage: 600 MG-200
     Route: 048
  15. ASPIRIN [Concomitant]
     Route: 048

REACTIONS (11)
  - Pulmonary hypertension [Fatal]
  - Coronary artery disease [Unknown]
  - Chronic right ventricular failure [Unknown]
  - Embolism [Unknown]
  - Activities of daily living impaired [Unknown]
  - Dyslipidaemia [Unknown]
  - Hypertension [Unknown]
  - Cardiac valve disease [Unknown]
  - Hypercholesterolaemia [Unknown]
  - Chest pain [Unknown]
  - Extrasystoles [Unknown]
